FAERS Safety Report 18296400 (Version 1)
Quarter: 2020Q3

REPORT INFORMATION
  Report Type: Spontaneous
  Country: US (occurrence: US)
  Receive Date: 20200922
  Receipt Date: 20200922
  Transmission Date: 20201103
  Serious: No
  Sender: FDA-Public Use
  Company Number: US-VIVUS, INC.-2019V1001210

PATIENT
  Sex: Female

DRUGS (3)
  1. QSYMIA [Suspect]
     Active Substance: PHENTERMINE HYDROCHLORIDE\TOPIRAMATE
     Indication: WEIGHT DECREASED
  2. QSYMIA [Suspect]
     Active Substance: PHENTERMINE HYDROCHLORIDE\TOPIRAMATE
  3. QSYMIA [Suspect]
     Active Substance: PHENTERMINE HYDROCHLORIDE\TOPIRAMATE
     Indication: WEIGHT DECREASED

REACTIONS (3)
  - Panic attack [Recovered/Resolved]
  - Lethargy [Recovered/Resolved]
  - Inappropriate schedule of product administration [Unknown]
